FAERS Safety Report 8936227 (Version 1)
Quarter: 2012Q4

REPORT INFORMATION
  Report Type: 
  Country: RU (occurrence: RU)
  Receive Date: 20121130
  Receipt Date: 20121130
  Transmission Date: 20130627
  Serious: Yes (Other)
  Sender: FDA-Public Use
  Company Number: RU-009507513-1211RUS011424

PATIENT
  Age: 43 Year
  Sex: Female

DRUGS (1)
  1. ZOELY [Suspect]
     Indication: CONTRACEPTION
     Dosage: UNK
     Route: 048
     Dates: start: 201211, end: 201211

REACTIONS (1)
  - Asthma [Recovered/Resolved with Sequelae]
